FAERS Safety Report 5221306-2 (Version None)
Quarter: 2007Q1

REPORT INFORMATION
  Report Type: 
  Country: None (occurrence: None)
  Receive Date: 20070126
  Receipt Date: 20070116
  Transmission Date: 20070707
  Serious: Yes (Other)
  Sender: FDA-Public Use
  Company Number: BR-PFIZER INC-2006154179

PATIENT
  Sex: Female

DRUGS (8)
  1. FRADEMICINA [Suspect]
     Indication: INFLUENZA
  2. NIMESULIDE [Suspect]
     Indication: PAIN
     Dosage: FREQ:UNKNOWN
     Route: 065
     Dates: start: 20020101, end: 20020101
  3. NIMESULIDE [Suspect]
     Indication: INFLAMMATION
  4. DIABINESE [Concomitant]
     Route: 048
     Dates: start: 19840101, end: 19940101
  5. ALDOMET [Concomitant]
     Dosage: DAILY DOSE:2000MG
     Route: 048
     Dates: start: 19840101
  6. INSULIN [Concomitant]
     Dates: start: 19940101
  7. BALCOR [Concomitant]
     Route: 048
     Dates: start: 19980101
  8. HYDROCHLOROTHIAZIDE [Concomitant]
     Route: 048
     Dates: start: 19980101

REACTIONS (2)
  - CARDIAC DISORDER [None]
  - UPPER LIMB FRACTURE [None]
